FAERS Safety Report 21785354 (Version 11)
Quarter: 2023Q4

REPORT INFORMATION
  Report Type: Report from Study
  Country: CA (occurrence: CA)
  Receive Date: 20221227
  Receipt Date: 20231026
  Transmission Date: 20240109
  Serious: Yes (Other)
  Sender: FDA-Public Use
  Company Number: CA-OTSUKA-2022_055823

PATIENT
  Age: 82 Year
  Sex: Female

DRUGS (3)
  1. CEDAZURIDINE\DECITABINE [Suspect]
     Active Substance: CEDAZURIDINE\DECITABINE
     Indication: Myelodysplastic syndrome
     Dosage: UNK (35 MG DECITABINE AND 100 MG CEDAZURIDINE)
     Route: 065
     Dates: start: 20221121
  2. CEDAZURIDINE\DECITABINE [Suspect]
     Active Substance: CEDAZURIDINE\DECITABINE
     Dosage: UNK (5 PILLS)
     Route: 065
  3. CEDAZURIDINE\DECITABINE [Suspect]
     Active Substance: CEDAZURIDINE\DECITABINE
     Dosage: UNK (3 PILLS)
     Route: 065

REACTIONS (9)
  - Red blood cell transfusion [Unknown]
  - Pericardial effusion [Unknown]
  - Platelet count decreased [Unknown]
  - Biopsy bone marrow [Unknown]
  - Oedema peripheral [Unknown]
  - Fatigue [Unknown]
  - Dizziness [Unknown]
  - Product distribution issue [Unknown]
  - Inappropriate schedule of product administration [Unknown]

NARRATIVE: CASE EVENT DATE: 20230207
